FAERS Safety Report 22350052 (Version 1)
Quarter: 2023Q2

REPORT INFORMATION
  Report Type: Spontaneous
  Country: US (occurrence: US)
  Receive Date: 20230522
  Receipt Date: 20230522
  Transmission Date: 20230722
  Serious: No
  Sender: FDA-Public Use
  Company Number: US-GE HEALTHCARE-2023CSU001573

PATIENT
  Age: 66 Year
  Sex: Male
  Weight: 76.644 kg

DRUGS (2)
  1. OMNIPAQUE [Suspect]
     Active Substance: IOHEXOL
     Indication: Computerised tomogram
     Dosage: UNK UNK, SINGLE
     Route: 065
     Dates: start: 20230307, end: 20230307
  2. OMNIPAQUE [Suspect]
     Active Substance: IOHEXOL
     Indication: Product used for unknown indication

REACTIONS (1)
  - Contrast media allergy [Recovered/Resolved]

NARRATIVE: CASE EVENT DATE: 20230307
